FAERS Safety Report 4551049-X (Version None)
Quarter: 2005Q1

REPORT INFORMATION
  Report Type: 
  Country: None (occurrence: None)
  Receive Date: 20050113
  Receipt Date: 20040923
  Transmission Date: 20050727
  Serious: No
  Sender: FDA-Public Use
  Company Number: US-BRISTOL-MYERS SQUIBB COMPANY-12710364

PATIENT
  Sex: Male

DRUGS (2)
  1. TRAZODONE HCL [Suspect]
     Indication: DIZZINESS
  2. SERZONE [Concomitant]

REACTIONS (2)
  - AGITATION [None]
  - FEELING ABNORMAL [None]
